FAERS Safety Report 6567902-1 (Version None)
Quarter: 2010Q1

REPORT INFORMATION
  Report Type: 
  Country: None (occurrence: None)
  Receive Date: 20100203
  Receipt Date: 20100130
  Transmission Date: 20100710
  Serious: Yes (Death)
  Sender: FDA-Public Use
  Company Number: PHHY2010MX05199

PATIENT
  Age: 82 Year
  Sex: Female

DRUGS (1)
  1. EUCREAS [Suspect]
     Indication: DIABETES MELLITUS

REACTIONS (1)
  - DEATH [None]
